FAERS Safety Report 19646655 (Version 4)
Quarter: 2023Q2

REPORT INFORMATION
  Report Type: Spontaneous
  Country: US (occurrence: US)
  Receive Date: 20210802
  Receipt Date: 20230630
  Transmission Date: 20230721
  Serious: No
  Sender: FDA-Public Use
  Company Number: US-GW PHARMA-202107USGW03709

PATIENT

DRUGS (4)
  1. EPIDIOLEX [Suspect]
     Active Substance: CANNABIDIOL
     Indication: Lennox-Gastaut syndrome
     Dosage: 340 MILLIGRAM, BID
     Route: 048
     Dates: start: 20210707
  2. EPIDIOLEX [Suspect]
     Active Substance: CANNABIDIOL
     Dosage: 340 MILLIGRAM, BID
     Route: 048
     Dates: start: 202107
  3. EPIDIOLEX [Suspect]
     Active Substance: CANNABIDIOL
     Dosage: 340 MILLIGRAM, BID
     Route: 048
     Dates: start: 20210707
  4. EPIDIOLEX [Suspect]
     Active Substance: CANNABIDIOL
     Dosage: 4 MILLILITER, BID
     Route: 048
     Dates: start: 20211214

REACTIONS (4)
  - Dysphemia [Unknown]
  - Weight increased [Unknown]
  - Fumbling [Unknown]
  - Abnormal behaviour [Unknown]
